FAERS Safety Report 5262795-7 (Version None)
Quarter: 2007Q1

REPORT INFORMATION
  Report Type: 
  Country: None (occurrence: None)
  Receive Date: 20070312
  Receipt Date: 20070228
  Transmission Date: 20070707
  Serious: Yes (Hospitalization)
  Sender: FDA-Public Use
  Company Number: CA-GLAXOSMITHKLINE-B0460160A

PATIENT
  Weight: 49 kg

DRUGS (8)
  1. PLACEBO [Suspect]
     Route: 042
     Dates: start: 20070205, end: 20070205
  2. ZOFRAN [Suspect]
     Dosage: 8MG TWICE PER DAY
     Route: 048
     Dates: start: 20070205
  3. GW679769 [Suspect]
     Dosage: 150MG PER DAY
     Route: 048
     Dates: start: 20070205
  4. DEXAMETHASONE [Suspect]
     Dosage: 8MG SINGLE DOSE
     Route: 042
     Dates: start: 20070205, end: 20070205
  5. EPIRUBICIN [Suspect]
     Indication: BREAST CANCER
     Route: 042
  6. SYNTHROID [Concomitant]
     Indication: HYPOTHYROIDISM
  7. FLUOROURACIL [Concomitant]
     Indication: BREAST CANCER
     Route: 042
  8. CYCLOPHOSPHAMIDE [Concomitant]
     Route: 042

REACTIONS (6)
  - DEHYDRATION [None]
  - DYSPEPSIA [None]
  - FATIGUE [None]
  - HEADACHE [None]
  - NAUSEA [None]
  - VOMITING [None]
